FAERS Safety Report 9702559 (Version 2)
Quarter: 2013Q4

REPORT INFORMATION
  Report Type: Spontaneous
  Country: DE (occurrence: JP)
  Receive Date: 20131121
  Receipt Date: 20131211
  Transmission Date: 20140711
  Serious: Yes (Other)
  Sender: FDA-Public Use
  Company Number: JP-FRI-1000051583

PATIENT
  Age: 89 Year
  Sex: Male

DRUGS (4)
  1. MEMANTINE [Suspect]
     Indication: DEMENTIA ALZHEIMER^S TYPE
     Dosage: 5 MG
     Route: 048
     Dates: start: 20130910, end: 20130916
  2. MEMANTINE [Suspect]
     Dosage: 10 MG
     Route: 048
     Dates: start: 20130917, end: 20130930
  3. MEMANTINE [Suspect]
     Indication: DEMENTIA ALZHEIMER^S TYPE
     Dosage: 15 MG
     Route: 048
     Dates: start: 20131001, end: 20131007
  4. MEMANTINE [Suspect]
     Indication: DEMENTIA ALZHEIMER^S TYPE
     Dosage: 10 MG
     Route: 048
     Dates: start: 20131008, end: 20131016

REACTIONS (1)
  - Atrioventricular block second degree [Recovered/Resolved]
